FAERS Safety Report 9543755 (Version 1)
Quarter: 2013Q3

REPORT INFORMATION
  Report Type: Spontaneous
  Country: US (occurrence: US)
  Receive Date: 20130923
  Receipt Date: 20130923
  Transmission Date: 20140515
  Serious: No
  Sender: FDA-Public Use
  Company Number: US-B.I. PHARMACEUTICALS,INC./RIDGEFIELD-2013-BI-28971BP

PATIENT
  Age: 81 Year
  Sex: Male
  Weight: 77 kg

DRUGS (2)
  1. COMBIVENT [Suspect]
     Indication: ASTHMA
     Dosage: STRENGTH: 20 MCG / 100 MCG; DAILY DOSE: 160 MCG/ 800 MCG
     Route: 055
     Dates: start: 201307
  2. CLONIDINE [Concomitant]
     Indication: HYPERTENSION
     Dosage: 0.2 MG
     Route: 048

REACTIONS (3)
  - Off label use [Not Recovered/Not Resolved]
  - Prescribed overdose [Not Recovered/Not Resolved]
  - Dyspnoea [Not Recovered/Not Resolved]
